FAERS Safety Report 8047844-5 (Version None)
Quarter: 2012Q1

REPORT INFORMATION
  Report Type: 
  Country: None (occurrence: None)
  Receive Date: 20120116
  Receipt Date: 20120110
  Transmission Date: 20120608
  Serious: Yes (Other)
  Sender: FDA-Public Use
  Company Number: PHHY2011CA112142

PATIENT
  Sex: Male

DRUGS (3)
  1. ANGIOTENSIN II ANTAGONISTS [Concomitant]
  2. ALISKIREN [Suspect]
     Indication: HYPERTENSION
     Dosage: 300 MG/ DAILY
     Route: 048
     Dates: start: 20110328, end: 20110429
  3. CALCIUM CHANNEL BLOCKERS [Concomitant]
     Dosage: UNK

REACTIONS (1)
  - DRUG INEFFECTIVE [None]
